FAERS Safety Report 6699859-7 (Version None)
Quarter: 2010Q2

REPORT INFORMATION
  Report Type: 
  Country: None (occurrence: None)
  Receive Date: 20100427
  Receipt Date: 20100427
  Transmission Date: 20101027
  Serious: Yes (Hospitalization)
  Sender: FDA-Public Use
  Company Number: None

PATIENT
  Age: 77 Year
  Sex: Male

DRUGS (1)
  1. AMPICILLIN AND SULBACTAM [Suspect]
     Indication: ACUTE ABDOMEN
     Dosage: 3 GM QID IV
     Route: 042
     Dates: start: 20100414, end: 20100418

REACTIONS (1)
  - RASH [None]
